FAERS Safety Report 16272301 (Version 3)
Quarter: 2021Q1

REPORT INFORMATION
  Report Type: Spontaneous
  Country: US (occurrence: US)
  Receive Date: 20190503
  Receipt Date: 20210202
  Transmission Date: 20210419
  Serious: Yes (Death, Hospitalization, Other)
  Sender: FDA-Public Use
  Company Number: US-ASTRAZENECA-2019SE59489

PATIENT
  Age: 21573 Day
  Sex: Female
  Weight: 91.6 kg

DRUGS (83)
  1. NEXIUM [Suspect]
     Active Substance: ESOMEPRAZOLE MAGNESIUM
     Indication: GASTROOESOPHAGEAL REFLUX DISEASE
     Dosage: GENERIC
     Route: 065
     Dates: start: 20150302, end: 20150402
  2. PROTONIX [Suspect]
     Active Substance: PANTOPRAZOLE SODIUM
     Indication: GASTROOESOPHAGEAL REFLUX DISEASE
     Route: 065
     Dates: start: 20160206
  3. RANITIDINE. [Concomitant]
     Active Substance: RANITIDINE
     Dates: start: 20031013, end: 20031113
  4. COMBIVENT [Concomitant]
     Active Substance: ALBUTEROL SULFATE\IPRATROPIUM BROMIDE
     Dates: start: 20131011
  5. METFORMIN [Concomitant]
     Active Substance: METFORMIN HYDROCHLORIDE
     Dates: start: 20031023
  6. DICYCLOMINE [Concomitant]
     Active Substance: DICYCLOMINE HYDROCHLORIDE
     Dates: start: 20031204
  7. LOVENOX [Concomitant]
     Active Substance: ENOXAPARIN SODIUM
     Dates: start: 20050615
  8. GABAPENTIN. [Concomitant]
     Active Substance: GABAPENTIN
     Dates: start: 20060214
  9. TRIAMCINOLONE [Concomitant]
     Active Substance: TRIAMCINOLONE
  10. SKELAXIN [Concomitant]
     Active Substance: METAXALONE
  11. GLYBURIDE. [Concomitant]
     Active Substance: GLYBURIDE
  12. VENTOLIN [Concomitant]
     Active Substance: ALBUTEROL SULFATE
  13. TAMIFLU [Concomitant]
     Active Substance: OSELTAMIVIR PHOSPHATE
  14. AMITRIPTYLINE [Concomitant]
     Active Substance: AMITRIPTYLINE
     Indication: DEPRESSION
     Dates: start: 20020820, end: 20170317
  15. LEVAQUIN [Concomitant]
     Active Substance: LEVOFLOXACIN
     Dates: start: 20010505
  16. ALPRAZOLAM. [Concomitant]
     Active Substance: ALPRAZOLAM
     Dates: start: 20040903
  17. POTASSIUM CHLORIDE. [Concomitant]
     Active Substance: POTASSIUM CHLORIDE
     Dates: start: 20050108
  18. ADVAIR HFA [Concomitant]
     Active Substance: FLUTICASONE PROPIONATE\SALMETEROL XINAFOATE
  19. LORAZEPAM. [Concomitant]
     Active Substance: LORAZEPAM
  20. NITROGLYCERIN. [Concomitant]
     Active Substance: NITROGLYCERIN
  21. DULERA [Concomitant]
     Active Substance: FORMOTEROL FUMARATE DIHYDRATE\MOMETASONE FUROATE
  22. NEXIUM [Suspect]
     Active Substance: ESOMEPRAZOLE MAGNESIUM
     Indication: GASTROOESOPHAGEAL REFLUX DISEASE
     Route: 048
     Dates: start: 20031023, end: 20160915
  23. PROTONIX [Suspect]
     Active Substance: PANTOPRAZOLE SODIUM
     Indication: GASTROOESOPHAGEAL REFLUX DISEASE
     Route: 065
     Dates: start: 20160123
  24. PROTONIX [Suspect]
     Active Substance: PANTOPRAZOLE SODIUM
     Indication: GASTROOESOPHAGEAL REFLUX DISEASE
     Route: 065
     Dates: start: 20170905
  25. TRAMADOL. [Concomitant]
     Active Substance: TRAMADOL
     Indication: PAIN
     Dates: start: 20040826, end: 20170119
  26. SULFAMETHOXAZOLE [Concomitant]
     Active Substance: SULFAMETHOXAZOLE
     Dates: start: 20130118
  27. METRONIDAZOLE. [Concomitant]
     Active Substance: METRONIDAZOLE
     Dates: start: 20010925
  28. NORVASC [Concomitant]
     Active Substance: AMLODIPINE BESYLATE
     Dates: start: 20031008
  29. TALWIN [Concomitant]
     Active Substance: PENTAZOCINE LACTATE
     Dates: start: 20041108
  30. DICLOFENAC [Concomitant]
     Active Substance: DICLOFENAC
     Dates: start: 20050922
  31. CALCITRIOL. [Concomitant]
     Active Substance: CALCITRIOL
  32. FERROUS SULFATE. [Concomitant]
     Active Substance: FERROUS SULFATE
  33. OMEPRAZOLE. [Concomitant]
     Active Substance: OMEPRAZOLE
     Dosage: 40.0MG UNKNOWN
     Route: 065
     Dates: start: 201109
  34. NEXIUM [Suspect]
     Active Substance: ESOMEPRAZOLE MAGNESIUM
     Indication: GASTROOESOPHAGEAL REFLUX DISEASE
     Dosage: 40.0MG UNKNOWN
     Route: 048
     Dates: start: 20031023
  35. NEXIUM 24HR [Suspect]
     Active Substance: ESOMEPRAZOLE MAGNESIUM
     Route: 048
  36. PROTONIX [Suspect]
     Active Substance: PANTOPRAZOLE SODIUM
     Indication: GASTROOESOPHAGEAL REFLUX DISEASE
     Route: 065
     Dates: start: 20121208, end: 20121213
  37. NICARDIPINE [Concomitant]
     Active Substance: NICARDIPINE
     Dates: start: 20150222
  38. VYTORIN [Concomitant]
     Active Substance: EZETIMIBE\SIMVASTATIN
     Dates: start: 20051130
  39. LISINOPRIL. [Concomitant]
     Active Substance: LISINOPRIL
  40. METOCLOPRAMIDE. [Concomitant]
     Active Substance: METOCLOPRAMIDE
  41. CELECOXIB. [Concomitant]
     Active Substance: CELECOXIB
  42. TERAZOSIN [Concomitant]
     Active Substance: TERAZOSIN HYDROCHLORIDE
  43. JANUVIA [Concomitant]
     Active Substance: SITAGLIPTIN PHOSPHATE
  44. BUDESONIDE. [Concomitant]
     Active Substance: BUDESONIDE
  45. NEXIUM [Suspect]
     Active Substance: ESOMEPRAZOLE MAGNESIUM
     Indication: GASTROOESOPHAGEAL REFLUX DISEASE
     Route: 048
  46. NEXIUM [Suspect]
     Active Substance: ESOMEPRAZOLE MAGNESIUM
     Indication: GASTROOESOPHAGEAL REFLUX DISEASE
     Dosage: 40.0MG UNKNOWN
     Route: 048
     Dates: start: 20050202
  47. NEXIUM [Suspect]
     Active Substance: ESOMEPRAZOLE MAGNESIUM
     Indication: GASTROOESOPHAGEAL REFLUX DISEASE
     Dosage: UNKNOWN
     Route: 048
  48. PROTONIX [Suspect]
     Active Substance: PANTOPRAZOLE SODIUM
     Indication: GASTROOESOPHAGEAL REFLUX DISEASE
     Route: 065
     Dates: start: 20170627
  49. OXYCODONE [Concomitant]
     Active Substance: OXYCODONE
     Dates: start: 20100409
  50. CEPHALEXIN. [Concomitant]
     Active Substance: CEPHALEXIN
     Dates: start: 20001214
  51. SPIRONOLACTONE. [Concomitant]
     Active Substance: SPIRONOLACTONE
     Dates: start: 20041102
  52. ZOLOFT [Concomitant]
     Active Substance: SERTRALINE HYDROCHLORIDE
     Dates: start: 20050808
  53. HYDROMORPHONE [Concomitant]
     Active Substance: HYDROMORPHONE
  54. LYRICA [Concomitant]
     Active Substance: PREGABALIN
  55. PANTOPRAZOLE [Concomitant]
     Active Substance: PANTOPRAZOLE
  56. MUPIROCIN. [Concomitant]
     Active Substance: MUPIROCIN
  57. ONDANSETRON [Concomitant]
     Active Substance: ONDANSETRON
  58. CALCIUM ACETATE. [Concomitant]
     Active Substance: CALCIUM ACETATE
  59. NEXIUM [Suspect]
     Active Substance: ESOMEPRAZOLE MAGNESIUM
     Indication: GASTROOESOPHAGEAL REFLUX DISEASE
     Dosage: UNKNOWN
     Route: 048
  60. DIFLUCAN [Concomitant]
     Active Substance: FLUCONAZOLE
     Dates: start: 20011009
  61. IBUPROFEN. [Concomitant]
     Active Substance: IBUPROFEN
     Dates: start: 20020613
  62. SEREVENT DISKUS [Concomitant]
     Active Substance: SALMETEROL XINAFOATE
     Dates: start: 20031205
  63. WARFARIN [Concomitant]
     Active Substance: WARFARIN
     Dates: start: 20050516
  64. NAPROXEN. [Concomitant]
     Active Substance: NAPROXEN
  65. PERIDEX [Concomitant]
     Active Substance: CHLORHEXIDINE GLUCONATE
  66. BENADRYL [Concomitant]
     Active Substance: DIPHENHYDRAMINE HYDROCHLORIDE
  67. PROTONIX [Suspect]
     Active Substance: PANTOPRAZOLE SODIUM
     Indication: GASTROOESOPHAGEAL REFLUX DISEASE
     Route: 065
     Dates: start: 20150118, end: 20150224
  68. HYDRALAZINE [Concomitant]
     Active Substance: HYDRALAZINE HYDROCHLORIDE
     Indication: BLOOD PRESSURE ABNORMAL
     Dates: start: 20120803, end: 20170418
  69. AZITHROMYCIN ANHYDROUS. [Concomitant]
     Active Substance: AZITHROMYCIN ANHYDROUS
     Indication: INFECTION
     Dates: start: 20161218, end: 20170220
  70. DELTASONE [Concomitant]
     Active Substance: PREDNISONE
     Dates: start: 20010925
  71. FENTANYL. [Concomitant]
     Active Substance: FENTANYL
     Dates: start: 20050406
  72. NOVOLIN NOS [Concomitant]
     Active Substance: INSULIN HUMAN
     Dates: start: 20050615
  73. BENAZEPRIL [Concomitant]
     Active Substance: BENAZEPRIL HYDROCHLORIDE
  74. PROTONIX [Suspect]
     Active Substance: PANTOPRAZOLE SODIUM
     Indication: GASTROOESOPHAGEAL REFLUX DISEASE
     Route: 065
     Dates: start: 20161001
  75. PROTONIX [Suspect]
     Active Substance: PANTOPRAZOLE SODIUM
     Indication: GASTROOESOPHAGEAL REFLUX DISEASE
     Route: 065
     Dates: start: 20170309
  76. PROTONIX [Suspect]
     Active Substance: PANTOPRAZOLE SODIUM
     Indication: GASTROOESOPHAGEAL REFLUX DISEASE
     Route: 065
     Dates: start: 20170810, end: 20170818
  77. FUROSEMIDE. [Concomitant]
     Active Substance: FUROSEMIDE
     Indication: FLUID RETENTION
     Dates: start: 20030228, end: 20170427
  78. PROPOXYPHEN [Concomitant]
     Dates: start: 20001214
  79. ENDOCET [Concomitant]
     Active Substance: ACETAMINOPHEN\OXYCODONE HYDROCHLORIDE
     Dates: start: 20020122
  80. CARISOPRODOL. [Concomitant]
     Active Substance: CARISOPRODOL
     Dates: start: 20040123
  81. FLOVENT [Concomitant]
     Active Substance: FLUTICASONE PROPIONATE
     Dates: start: 20040216
  82. SIMVASTATIN. [Concomitant]
     Active Substance: SIMVASTATIN
  83. TIZANIDINE. [Concomitant]
     Active Substance: TIZANIDINE

REACTIONS (6)
  - Chronic kidney disease [Unknown]
  - Nephrogenic anaemia [Unknown]
  - Hyperparathyroidism secondary [Unknown]
  - End stage renal disease [Unknown]
  - Acute kidney injury [Unknown]
  - Renal failure [Unknown]

NARRATIVE: CASE EVENT DATE: 20130316
